FAERS Safety Report 14473903 (Version 1)
Quarter: 2018Q1

REPORT INFORMATION
  Report Type: Spontaneous
  Country: US (occurrence: US)
  Receive Date: 20180131
  Receipt Date: 20180131
  Transmission Date: 20180509
  Serious: No
  Sender: FDA-Public Use
  Company Number: None

PATIENT
  Age: 80 Year
  Sex: Female

DRUGS (13)
  1. DOXYCYCLINE. [Concomitant]
     Active Substance: DOXYCYCLINE
  2. SERTRALINE [Concomitant]
     Active Substance: SERTRALINE HYDROCHLORIDE
  3. LEVOTHYROXINE. [Concomitant]
     Active Substance: LEVOTHYROXINE
  4. ESBRIET [Suspect]
     Active Substance: PIRFENIDONE
     Indication: IDIOPATHIC PULMONARY FIBROSIS
     Route: 048
     Dates: start: 20171118
  5. SIMVASTATIN. [Concomitant]
     Active Substance: SIMVASTATIN
  6. CLONAZEPAM. [Concomitant]
     Active Substance: CLONAZEPAM
  7. ALBUTEROL. [Concomitant]
     Active Substance: ALBUTEROL
  8. CODEINE [Concomitant]
     Active Substance: CODEINE
  9. BENZONATATE. [Concomitant]
     Active Substance: BENZONATATE
  10. PREDNISONE. [Concomitant]
     Active Substance: PREDNISONE
  11. MOMETASONE [Concomitant]
     Active Substance: MOMETASONE
  12. SYMBICORT [Concomitant]
     Active Substance: BUDESONIDE\FORMOTEROL FUMARATE DIHYDRATE
  13. TRAMADOL. [Concomitant]
     Active Substance: TRAMADOL

REACTIONS (4)
  - Gait disturbance [None]
  - Fatigue [None]
  - Abdominal discomfort [None]
  - Lethargy [None]

NARRATIVE: CASE EVENT DATE: 201801
